FAERS Safety Report 4783521-1 (Version None)
Quarter: 2005Q3

REPORT INFORMATION
  Report Type: 
  Country: None (occurrence: None)
  Receive Date: 20050929
  Receipt Date: 20050921
  Transmission Date: 20060218
  Serious: Yes (Death, Other)
  Sender: FDA-Public Use
  Company Number: PHBS2005JP13882

PATIENT
  Age: 54 Year
  Sex: Female

DRUGS (2)
  1. MIDAZOLAM [Concomitant]
     Route: 041
  2. GLEEVEC [Suspect]
     Indication: ACUTE LYMPHOCYTIC LEUKAEMIA
     Route: 048

REACTIONS (4)
  - BONE MARROW DEPRESSION [None]
  - DYSPNOEA EXACERBATED [None]
  - HEPATIC FAILURE [None]
  - PNEUMONIA [None]
